FAERS Safety Report 25831934 (Version 1)
Quarter: 2025Q3

REPORT INFORMATION
  Report Type: Report from Study
  Country: US (occurrence: US)
  Receive Date: 20250922
  Receipt Date: 20250922
  Transmission Date: 20251021
  Serious: Yes (Other)
  Sender: BRISTOL-MYERS SQUIBB COMPANY
  Company Number: US-BRISTOL-MYERS SQUIBB COMPANY-2025-116099

PATIENT
  Age: 76 Year
  Sex: Female

DRUGS (12)
  1. CAMZYOS [Suspect]
     Active Substance: MAVACAMTEN
     Indication: Hypertrophic cardiomyopathy
     Dates: start: 20240625
  2. CAMZYOS [Suspect]
     Active Substance: MAVACAMTEN
     Dates: start: 20241211, end: 20250818
  3. CAMZYOS [Suspect]
     Active Substance: MAVACAMTEN
     Dates: start: 202405
  4. DOCUSATE SODIUM [Concomitant]
     Active Substance: DOCUSATE SODIUM
     Indication: Constipation
  5. FAMOTIDINE [Concomitant]
     Active Substance: FAMOTIDINE
     Indication: Gastrooesophageal reflux disease
     Dosage: OTC
  6. CHOLECALCIFEROL [Concomitant]
     Active Substance: CHOLECALCIFEROL
     Indication: Vitamin D deficiency
  7. CHOLECALCIFEROL [Concomitant]
     Active Substance: CHOLECALCIFEROL
     Dosage: TAKE 1 TABLET (5,000 UNITS TOTAL)
  8. ZINC [Concomitant]
     Active Substance: ZINC
     Indication: Vitamin supplementation
  9. ACETAMINOPHEN [Concomitant]
     Active Substance: ACETAMINOPHEN
     Indication: Pain
     Dosage: PRN, OTC
  10. blink eye drops [Concomitant]
     Indication: Eye disorder
  11. VITAL PROTEINS COLLAGEN PEPTIDES [Concomitant]
     Indication: Product used for unknown indication
  12. VERAPAMIL [Concomitant]
     Active Substance: VERAPAMIL HYDROCHLORIDE
     Indication: Hypertrophic cardiomyopathy

REACTIONS (2)
  - Heart failure with reduced ejection fraction [Recovered/Resolved]
  - Condition aggravated [Recovered/Resolved]

NARRATIVE: CASE EVENT DATE: 20250815
